FAERS Safety Report 21958130 (Version 1)
Quarter: 2023Q1

REPORT INFORMATION
  Report Type: Spontaneous
  Country: UM (occurrence: None)
  Receive Date: 20230203
  Receipt Date: 20230203
  Transmission Date: 20230418
  Serious: Yes (Other)
  Sender: FDA-Public Use
  Company Number: None

PATIENT
  Age: 68 Year
  Sex: Female

DRUGS (17)
  1. AMBRISENTAN [Suspect]
     Active Substance: AMBRISENTAN
     Indication: Pulmonary hypertension
     Dosage: FREQUENCY : DAILY;?
     Route: 048
     Dates: start: 20160421
  2. SILDENAFIL [Suspect]
     Active Substance: SILDENAFIL
  3. SILDENAFIL [Concomitant]
     Active Substance: SILDENAFIL
  4. SUCRALFATE [Concomitant]
     Active Substance: SUCRALFATE
  5. OXYCODONE [Concomitant]
     Active Substance: OXYCODONE
  6. CELLCEPT [Concomitant]
     Active Substance: MYCOPHENOLATE MOFETIL
  7. NORTRIPTYLINE [Concomitant]
     Active Substance: NORTRIPTYLINE
  8. LEVOTHYROXINE [Concomitant]
     Active Substance: LEVOTHYROXINE
  9. PANTOPRAZOLE [Concomitant]
     Active Substance: PANTOPRAZOLE
  10. OXYGEN INTRANASAL [Concomitant]
  11. MELATONIN [Concomitant]
     Active Substance: MELATONIN
  12. ALBUTEROL [Concomitant]
     Active Substance: ALBUTEROL
  13. ALBUTEROL SULFATE [Concomitant]
     Active Substance: ALBUTEROL SULFATE
  14. FUROSEMIDE [Concomitant]
     Active Substance: FUROSEMIDE
  15. BENZONATATE [Concomitant]
     Active Substance: BENZONATATE
  16. FERROUS SULFATE [Concomitant]
     Active Substance: FERROUS SULFATE
  17. MUPIROCIN TOP OINT [Concomitant]

REACTIONS (3)
  - Anaemia [None]
  - Faeces discoloured [None]
  - Transfusion [None]

NARRATIVE: CASE EVENT DATE: 20230114
